FAERS Safety Report 7827205-1 (Version None)
Quarter: 2011Q4

REPORT INFORMATION
  Report Type: 
  Country: None (occurrence: None)
  Receive Date: 20111019
  Receipt Date: 20111019
  Transmission Date: 20120403
  Serious: Yes (Hospitalization)
  Sender: FDA-Public Use
  Company Number: None

PATIENT
  Sex: Male
  Weight: 83 kg

DRUGS (1)
  1. CISPLATIN [Suspect]
     Dates: end: 20071003

REACTIONS (6)
  - VOMITING [None]
  - DEHYDRATION [None]
  - MUCOSAL INFLAMMATION [None]
  - NAUSEA [None]
  - NO THERAPEUTIC RESPONSE [None]
  - ORAL PAIN [None]
